FAERS Safety Report 13891356 (Version 4)
Quarter: 2018Q1

REPORT INFORMATION
  Report Type: Spontaneous
  Country: US (occurrence: US)
  Receive Date: 20170822
  Receipt Date: 20180321
  Transmission Date: 20180508
  Serious: No
  Sender: FDA-Public Use
  Company Number: US-PFIZER INC-2017357446

PATIENT
  Age: 57 Year
  Sex: Male

DRUGS (3)
  1. BOSULIF [Suspect]
     Active Substance: BOSUTINIB MONOHYDRATE
     Indication: CHRONIC MYELOID LEUKAEMIA
     Dosage: 500 MG, DAILY, (1 TABLET BY MOUTH EVERY DAY)
     Route: 048
     Dates: start: 20170728
  2. GABAPENTIN. [Concomitant]
     Active Substance: GABAPENTIN
     Dosage: UNK
  3. HUMALOG [Concomitant]
     Active Substance: INSULIN LISPRO
     Dosage: UNK

REACTIONS (3)
  - Diarrhoea [Not Recovered/Not Resolved]
  - Drug dose omission [Unknown]
  - Weight increased [Unknown]

NARRATIVE: CASE EVENT DATE: 2017
